FAERS Safety Report 7063276-0 (Version None)
Quarter: 2010Q4

REPORT INFORMATION
  Report Type: 
  Country: None (occurrence: None)
  Receive Date: 20101026
  Receipt Date: 20100630
  Transmission Date: 20110411
  Serious: Yes (Other)
  Sender: FDA-Public Use
  Company Number: US-PFIZER INC-2010081690

PATIENT
  Sex: Male

DRUGS (2)
  1. LIPITOR [Suspect]
     Dosage: UNK
  2. NIACIN [Suspect]
     Dosage: UNK

REACTIONS (2)
  - HOT FLUSH [None]
  - MUSCULAR WEAKNESS [None]
